FAERS Safety Report 24166064 (Version 2)
Quarter: 2024Q3

REPORT INFORMATION
  Report Type: Spontaneous
  Country: US (occurrence: US)
  Receive Date: 20240802
  Receipt Date: 20240906
  Transmission Date: 20241017
  Serious: No
  Sender: BEIGENE
  Company Number: US-BEIGENE-BGN-2024-010646

PATIENT

DRUGS (1)
  1. BRUKINSA [Suspect]
     Active Substance: ZANUBRUTINIB
     Indication: Mantle cell lymphoma
     Dosage: 160 MILLIGRAM, BID
     Route: 048
     Dates: start: 20221022, end: 20240708

REACTIONS (3)
  - Malaise [Not Recovered/Not Resolved]
  - Product dose omission issue [Unknown]
  - Product container seal issue [Not Recovered/Not Resolved]

NARRATIVE: CASE EVENT DATE: 20240708
